FAERS Safety Report 16256856 (Version 1)
Quarter: 2019Q2

REPORT INFORMATION
  Report Type: Report from Study
  Country: IT (occurrence: IT)
  Receive Date: 20190430
  Receipt Date: 20190430
  Transmission Date: 20190711
  Serious: Yes (Hospitalization)
  Sender: FDA-Public Use
  Company Number: IT-MYLANLABS-2019M1040379

PATIENT
  Age: 84 Year
  Sex: Female

DRUGS (3)
  1. DRAMION                            /00413701/ [Suspect]
     Active Substance: GLICLAZIDE
     Indication: DIABETES MELLITUS
     Dosage: 1 DOSAGE FORM, QD
     Route: 048
  2. METFORMIN [Suspect]
     Active Substance: METFORMIN HYDROCHLORIDE
     Indication: DIABETES MELLITUS
     Dosage: 1.5 GRAM, QD
     Route: 048
  3. URBASON                            /00049601/ [Suspect]
     Active Substance: METHYLPREDNISOLONE
     Indication: PERIPHERAL T-CELL LYMPHOMA UNSPECIFIED
     Dosage: 2 DOSAGE FORM, QD
     Route: 042

REACTIONS (2)
  - Hypoglycaemia [Recovering/Resolving]
  - Loss of consciousness [Recovering/Resolving]

NARRATIVE: CASE EVENT DATE: 20180309
